FAERS Safety Report 18484109 (Version 1)
Quarter: 2020Q4

REPORT INFORMATION
  Report Type: Other
  Country: CA (occurrence: CA)
  Receive Date: 20201110
  Receipt Date: 20201110
  Transmission Date: 20210114
  Serious: Yes (Other)
  Sender: FDA-Public Use
  Company Number: CA-ROCHE-2708864

PATIENT
  Sex: Female

DRUGS (1)
  1. OCREVUS [Suspect]
     Active Substance: OCRELIZUMAB
     Indication: RELAPSING-REMITTING MULTIPLE SCLEROSIS
     Dosage: 300 MG AT DAY 0 AND 14, THEN 600 MG EVERY 6 MONTH
     Route: 042
     Dates: start: 20190314

REACTIONS (6)
  - Fall [Unknown]
  - Painful respiration [Recovering/Resolving]
  - Balance disorder [Unknown]
  - Pain [Recovering/Resolving]
  - Diverticulitis [Recovered/Resolved]
  - Bone contusion [Recovered/Resolved]
